FAERS Safety Report 12000793 (Version 1)
Quarter: 2016Q1

REPORT INFORMATION
  Report Type: Spontaneous
  Country: US (occurrence: US)
  Receive Date: 20160204
  Receipt Date: 20160204
  Transmission Date: 20160526
  Serious: No
  Sender: FDA-Public Use
  Company Number: US-SUN PHARMACEUTICAL INDUSTRIES LTD-2015US-101001

PATIENT
  Sex: Female

DRUGS (1)
  1. METOPROLOL. [Suspect]
     Active Substance: METOPROLOL
     Indication: HYPERTENSION
     Dosage: UNK, BID
     Route: 048

REACTIONS (4)
  - Hypoaesthesia [Unknown]
  - Skin discolouration [Not Recovered/Not Resolved]
  - Sinus headache [Unknown]
  - Tremor [Unknown]
